FAERS Safety Report 13150418 (Version 1)
Quarter: 2017Q1

REPORT INFORMATION
  Report Type: Spontaneous
  Country: US (occurrence: US)
  Receive Date: 20170125
  Receipt Date: 20170125
  Transmission Date: 20170428
  Serious: No
  Sender: FDA-Public Use
  Company Number: US-PFIZER INC-2017031832

PATIENT
  Sex: Female

DRUGS (6)
  1. LYRICA [Suspect]
     Active Substance: PREGABALIN
     Dosage: 150 MG, DAILY
     Route: 048
  2. LYRICA [Suspect]
     Active Substance: PREGABALIN
     Indication: FIBROMYALGIA
     Dosage: 150 MG, DAILY
     Route: 048
  3. LYRICA [Suspect]
     Active Substance: PREGABALIN
     Dosage: 300 MG, DAILY
  4. SAVELLA [Suspect]
     Active Substance: MILNACIPRAN HYDROCHLORIDE
     Indication: FIBROMYALGIA
     Dosage: 50 MG ONCE IN THE MORNING AND ONCE AT NIGHT
     Route: 048
  5. SAVELLA [Suspect]
     Active Substance: MILNACIPRAN HYDROCHLORIDE
     Indication: MYALGIA
  6. LYRICA [Suspect]
     Active Substance: PREGABALIN
     Dosage: 450 MG, DAILY (150 MG CAPSULES; TAKES ONE IN THE MORNING AND TWO BEFORE BED)
     Route: 048

REACTIONS (20)
  - Irritable bowel syndrome [Recovering/Resolving]
  - Intentional product use issue [Unknown]
  - Nausea [Not Recovered/Not Resolved]
  - Fatigue [Recovering/Resolving]
  - Withdrawal syndrome [Recovering/Resolving]
  - Poor quality sleep [Recovering/Resolving]
  - Pain in extremity [Unknown]
  - Headache [Recovering/Resolving]
  - Condition aggravated [Unknown]
  - Peripheral swelling [Recovering/Resolving]
  - Weight fluctuation [Not Recovered/Not Resolved]
  - Drug effect incomplete [Unknown]
  - Asthenia [Recovering/Resolving]
  - Lethargy [Recovering/Resolving]
  - Constipation [Recovering/Resolving]
  - Burning sensation [Unknown]
  - Paraesthesia [Recovering/Resolving]
  - Insomnia [Unknown]
  - Somnolence [Unknown]
  - Feeling abnormal [Recovering/Resolving]
